FAERS Safety Report 9320206 (Version 1)
Quarter: 2013Q2

REPORT INFORMATION
  Report Type: Spontaneous
  Country: US (occurrence: US)
  Receive Date: 20130530
  Receipt Date: 20130530
  Transmission Date: 20140414
  Serious: No
  Sender: FDA-Public Use
  Company Number: US-009507513-1304USA002699

PATIENT
  Age: 68 Year
  Sex: Male
  Weight: 158.73 kg

DRUGS (24)
  1. MIRALAX [Suspect]
     Indication: MEDICAL OBSERVATION
     Dosage: 17 G, QD
     Route: 048
     Dates: start: 2007, end: 2013
  2. MIRALAX [Suspect]
     Indication: CONSTIPATION
  3. LIPITOR [Concomitant]
     Indication: CARDIAC DISORDER
     Dosage: 20 MG, QPM
  4. COUMADIN [Concomitant]
     Indication: PRODUCT USED FOR UNKNOWN INDICATION
     Dosage: UNK, UNKNOWN
  5. NITROLINGUAL [Concomitant]
     Indication: CHEST PAIN
     Dosage: UNK, PRN
  6. PAROXETINE HYDROCHLORIDE [Concomitant]
     Indication: DEPRESSION
     Dosage: 20 MG, QPM
  7. RANITIDINE [Concomitant]
     Indication: GASTROOESOPHAGEAL REFLUX DISEASE
     Dosage: 150 MG, BID
  8. POTASSIUM CHLORIDE [Concomitant]
     Indication: PRODUCT USED FOR UNKNOWN INDICATION
     Dosage: UNK, BID
  9. FUROSEMIDE [Concomitant]
     Indication: PRODUCT USED FOR UNKNOWN INDICATION
     Dosage: 80 MG, QD
  10. FUROSEMIDE [Concomitant]
     Indication: PRODUCT USED FOR UNKNOWN INDICATION
     Dosage: 10 MG, QD
  11. AMBIEN [Concomitant]
     Indication: SLEEP DISORDER
     Dosage: 10 MG, HS
  12. METOCLOPRAMIDE [Concomitant]
     Indication: PRODUCT USED FOR UNKNOWN INDICATION
     Dosage: 5 MG, UNKNOWN
  13. ALPRAZOLAM [Concomitant]
     Indication: ANXIETY
     Dosage: 1 MG, BID
  14. CARBIDOPA (+) LEVODOPA [Concomitant]
     Indication: MUSCLE SPASMS
     Dosage: UNK, HS
  15. GABAPENTIN [Concomitant]
     Indication: NEURALGIA
     Dosage: 300 MG, BID
  16. LISINOPRIL [Concomitant]
     Indication: BLOOD PRESSURE
     Dosage: 10 MG, QD
  17. CELEBREX [Concomitant]
     Indication: ARTHRITIS
     Dosage: 200 MG, QD
  18. ALLOPURINOL [Concomitant]
     Indication: GOUT
     Dosage: 300 MG, QD
  19. BACLOFEN [Concomitant]
     Indication: RESTLESS LEGS SYNDROME
     Dosage: 10 MG, HS
  20. NASONEX [Concomitant]
     Indication: PRODUCT USED FOR UNKNOWN INDICATION
     Dosage: 4 DF, BID
  21. ASTELIN (AZELASTINE HYDROCHLORIDE) [Concomitant]
     Indication: PRODUCT USED FOR UNKNOWN INDICATION
     Dosage: 4 DF, BID
  22. COMBIVENT [Concomitant]
     Indication: PRODUCT USED FOR UNKNOWN INDICATION
     Dosage: 2 DF, BID
  23. ASPIRIN [Concomitant]
     Indication: PRODUCT USED FOR UNKNOWN INDICATION
     Dosage: 81 MG, QD
  24. PHENYLEPHRINE [Concomitant]
     Indication: NASAL DECONGESTION THERAPY
     Dosage: 10 MG, HS

REACTIONS (3)
  - Incorrect drug administration duration [Unknown]
  - Inappropriate schedule of drug administration [Unknown]
  - Drug effect decreased [Unknown]
